FAERS Safety Report 13288388 (Version 3)
Quarter: 2017Q4

REPORT INFORMATION
  Report Type: Spontaneous
  Country: US (occurrence: US)
  Receive Date: 20170302
  Receipt Date: 20171115
  Transmission Date: 20180320
  Serious: No
  Sender: FDA-Public Use
  Company Number: US-BAUSCH-BL-2017-003264

PATIENT
  Age: 17 Year
  Sex: Male

DRUGS (1)
  1. APRISO [Suspect]
     Active Substance: MESALAMINE
     Indication: CROHN^S DISEASE
     Route: 065
     Dates: start: 2016

REACTIONS (2)
  - Off label use [Unknown]
  - Product use issue [Unknown]
